FAERS Safety Report 21296503 (Version 2)
Quarter: 2022Q3

REPORT INFORMATION
  Report Type: Report from Study
  Country: DE (occurrence: DE)
  Receive Date: 20220906
  Receipt Date: 20220920
  Transmission Date: 20221026
  Serious: Yes (Hospitalization)
  Sender: FDA-Public Use
  Company Number: DE-KYOWAKIRIN-2022BKK013909

PATIENT

DRUGS (3)
  1. BUROSUMAB [Suspect]
     Active Substance: BUROSUMAB
     Indication: Hereditary hypophosphataemic rickets
     Dosage: 20 MG
     Route: 058
     Dates: start: 20180731
  2. BUROSUMAB [Suspect]
     Active Substance: BUROSUMAB
     Dosage: 60 MG
     Route: 058
     Dates: start: 20220822
  3. INSULIN NOS [Concomitant]
     Active Substance: INSULIN NOS
     Indication: Product used for unknown indication
     Dosage: UNK
     Route: 065
     Dates: start: 20200831

REACTIONS (1)
  - Hyperglycaemia [Recovered/Resolved]

NARRATIVE: CASE EVENT DATE: 20220904
